FAERS Safety Report 20113471 (Version 1)
Quarter: 2021Q4

REPORT INFORMATION
  Report Type: Spontaneous
  Country: CN (occurrence: None)
  Receive Date: 20211125
  Receipt Date: 20211125
  Transmission Date: 20220303
  Serious: Yes (Hospitalization)
  Sender: FDA-Public Use
  Company Number: 2021A815967

PATIENT
  Age: 78 Year
  Sex: Female
  Weight: 45 kg

DRUGS (4)
  1. BUDESONIDE [Suspect]
     Active Substance: BUDESONIDE
     Indication: Chronic obstructive pulmonary disease
     Route: 055
     Dates: start: 20211015, end: 20211102
  2. PIPERACILLIN AND TAZOBACTAM [Suspect]
     Active Substance: PIPERACILLIN SODIUM\TAZOBACTAM SODIUM
     Indication: Pneumonia
     Route: 041
     Dates: start: 20211019, end: 20211025
  3. FLUCONAZOLE [Concomitant]
     Active Substance: FLUCONAZOLE
  4. SODIUM CHLORIDE [Concomitant]
     Active Substance: SODIUM CHLORIDE

REACTIONS (2)
  - Oral candidiasis [Recovering/Resolving]
  - Gastrointestinal candidiasis [Recovering/Resolving]

NARRATIVE: CASE EVENT DATE: 20211022
